FAERS Safety Report 7084702-7 (Version None)
Quarter: 2010Q4

REPORT INFORMATION
  Report Type: 
  Country: None (occurrence: None)
  Receive Date: 20101104
  Receipt Date: 20101026
  Transmission Date: 20110411
  Serious: Yes (Other)
  Sender: FDA-Public Use
  Company Number: FR-AMGEN-KDL393255

PATIENT

DRUGS (2)
  1. VECTIBIX [Suspect]
     Indication: PRODUCT USED FOR UNKNOWN INDICATION
     Dosage: 390 MG, UNK
     Route: 042
  2. VECTIBIX [Suspect]
     Dosage: 390 MG, UNK
     Route: 042
     Dates: start: 20100127

REACTIONS (19)
  - ABDOMINAL PAIN UPPER [None]
  - APHTHOUS STOMATITIS [None]
  - ASTHENIA [None]
  - DIARRHOEA [None]
  - FUNGAL INFECTION [None]
  - HEPATIC INFECTION [None]
  - HYPOPHAGIA [None]
  - METASTASES TO PERITONEUM [None]
  - MUCOSAL INFLAMMATION [None]
  - NAUSEA [None]
  - ORAL PAIN [None]
  - PAIN [None]
  - PARAESTHESIA [None]
  - PHARYNGEAL LESION [None]
  - PYREXIA [None]
  - SKIN REACTION [None]
  - SMALL INTESTINAL OBSTRUCTION [None]
  - TONGUE ULCERATION [None]
  - VOMITING [None]
